FAERS Safety Report 8989149 (Version 2)
Quarter: 2013Q1

REPORT INFORMATION
  Report Type: Spontaneous
  Country: FR (occurrence: None)
  Receive Date: 20121219
  Receipt Date: 20130206
  Transmission Date: 20140127
  Serious: Yes (Life-Threatening, Hospitalization)
  Sender: FDA-Public Use
  Company Number: 2012000274

PATIENT
  Age: 80 Year
  Sex: Female

DRUGS (10)
  1. ACEON (PERINDOPRIL ERBUMINE) TABLET [Suspect]
     Indication: PRODUCT USED FOR UNKNOWN INDICATION
     Route: 048
     Dates: end: 20121121
  2. FLUDEX [Suspect]
     Indication: PRODUCT USED FOR UNKNOWN INDICATION
     Route: 048
     Dates: end: 20121121
  3. TEMERIT [Suspect]
     Indication: PRODUCT USED FOR UNKNOWN INDICATION
     Route: 048
     Dates: end: 20121121
  4. TEMERIT [Suspect]
     Route: 048
     Dates: end: 20121121
  5. METFORMINE [Suspect]
     Indication: TYPE 2 DIABETES MELLITUS
     Route: 048
     Dates: end: 20121119
  6. LASIX (FUROSEMIDE) [Suspect]
     Dosage: 1.5 DF QD ORAL
     Route: 048
     Dates: end: 20121123
  7. ZOCOR (SIMVASTATIN) [Concomitant]
  8. ASPEGIC (ACETYLSALICYLATE LYSINE) [Concomitant]
  9. SINTROM (ACENOCOUMAROL)CORDARONE (AMIODARONE HYDROCHLORIDE) [Concomitant]
  10. SINTROM (ACENOCOUMAROL) [Concomitant]

REACTIONS (4)
  - Lactic acidosis [None]
  - Drug interaction [None]
  - Hyperkalaemia [None]
  - Renal failure acute [None]
